FAERS Safety Report 5089650-X (Version None)
Quarter: 2006Q3

REPORT INFORMATION
  Report Type: 
  Country: None (occurrence: None)
  Receive Date: 20060822
  Receipt Date: 20060803
  Transmission Date: 20061208
  Serious: Yes (Hospitalization, Other)
  Sender: FDA-Public Use
  Company Number: US200608001029

PATIENT
  Age: 77 Year
  Sex: Female

DRUGS (6)
  1. FORTEO [Suspect]
     Indication: OSTEOPOROSIS
     Dates: start: 20050204
  2. FORTEO PEN (FORTEO PEN) PEN, DISPOSABLE [Concomitant]
  3. NORVASC [Concomitant]
  4. PRAVACHOL [Concomitant]
  5. ZEBETA [Concomitant]
  6. ARIMIDEX [Concomitant]

REACTIONS (5)
  - BREAST CANCER FEMALE [None]
  - BREAST PAIN [None]
  - BREAST SWELLING [None]
  - PHARMACEUTICAL PRODUCT COMPLAINT [None]
  - SKIN WARM [None]
